FAERS Safety Report 14105322 (Version 2)
Quarter: 2017Q4

REPORT INFORMATION
  Report Type: Report from Study
  Country: US (occurrence: BR)
  Receive Date: 20171018
  Receipt Date: 20171031
  Transmission Date: 20180321
  Serious: Yes (Hospitalization, Other)
  Sender: FDA-Public Use
  Company Number: US-SUNOVION-2017SUN004503

PATIENT
  Age: 58 Year
  Sex: Female
  Weight: 57 kg

DRUGS (4)
  1. INDACATEROL AND GLYCOPYRROLATE [Suspect]
     Active Substance: GLYCOPYRROLATE\INDACATEROL MALEATE
     Indication: DYSPNOEA
     Dosage: 1 DF (110/50 UG), QD, REGIMEN #1
     Route: 055
     Dates: start: 201708, end: 201709
  2. INDACATEROL AND GLYCOPYRROLATE [Suspect]
     Active Substance: GLYCOPYRROLATE\INDACATEROL MALEATE
     Indication: CHRONIC OBSTRUCTIVE PULMONARY DISEASE
  3. HYDROCHLOROTHIAZIDE. [Concomitant]
     Active Substance: HYDROCHLOROTHIAZIDE
  4. LOSARTAN. [Concomitant]
     Active Substance: LOSARTAN

REACTIONS (8)
  - Lung disorder [Unknown]
  - Dysphonia [Recovering/Resolving]
  - Lung neoplasm malignant [Unknown]
  - Throat cancer [Recovering/Resolving]
  - Throat irritation [Unknown]
  - Dysphagia [Recovering/Resolving]
  - Product use in unapproved indication [Unknown]
  - Malaise [Unknown]

NARRATIVE: CASE EVENT DATE: 201708
